FAERS Safety Report 10053289 (Version 1)
Quarter: 2014Q2

REPORT INFORMATION
  Report Type: Spontaneous
  Country: US (occurrence: US)
  Receive Date: 20140402
  Receipt Date: 20140402
  Transmission Date: 20141212
  Serious: No
  Sender: FDA-Public Use
  Company Number: US-ASTRAZENECA-2014SE10822

PATIENT
  Sex: Male

DRUGS (4)
  1. ATACAND [Suspect]
     Route: 048
  2. HYDROCHLOROTHIAZIDE (NON AZ PRODUCT) [Suspect]
     Route: 065
  3. HYDROCODONE [Suspect]
     Route: 065
  4. XALKORI [Suspect]
     Route: 065

REACTIONS (4)
  - Fatigue [Unknown]
  - Nausea [Unknown]
  - Constipation [Unknown]
  - Renal impairment [Unknown]
